FAERS Safety Report 10059456 (Version 1)
Quarter: 2014Q2

REPORT INFORMATION
  Report Type: Spontaneous
  Country: CA (occurrence: CA)
  Receive Date: 20140404
  Receipt Date: 20140404
  Transmission Date: 20141212
  Serious: Yes (Hospitalization)
  Sender: FDA-Public Use
  Company Number: CA-PFIZER INC-2014092862

PATIENT
  Age: 80 Year
  Sex: Male

DRUGS (2)
  1. SERTRALINE HCL [Suspect]
     Dosage: UNK
  2. ABILIFY [Suspect]
     Dosage: 5.0 MG, 1X/DAY
     Route: 048

REACTIONS (1)
  - Pulmonary oedema [Recovering/Resolving]
